FAERS Safety Report 22350989 (Version 1)
Quarter: 2023Q2

REPORT INFORMATION
  Report Type: Report from Study
  Country: US (occurrence: None)
  Receive Date: 20230522
  Receipt Date: 20230522
  Transmission Date: 20230722
  Serious: Yes (Hospitalization)
  Sender: FDA-Public Use
  Company Number: 2023A117744

PATIENT
  Sex: Female

DRUGS (1)
  1. CALQUENCE [Suspect]
     Active Substance: ACALABRUTINIB
     Indication: Lymphocytic leukaemia
     Route: 048

REACTIONS (6)
  - Infection [Unknown]
  - Dehydration [Unknown]
  - Colitis [Unknown]
  - Depression [Unknown]
  - Anxiety [Unknown]
  - Emotional disorder [Unknown]
